FAERS Safety Report 18356895 (Version 1)
Quarter: 2020Q4

REPORT INFORMATION
  Report Type: Report from Study
  Country: AU (occurrence: AU)
  Receive Date: 20201007
  Receipt Date: 20201007
  Transmission Date: 20210114
  Serious: Yes (Other)
  Sender: FDA-Public Use
  Company Number: AU-GILEAD-2020-0496946

PATIENT
  Age: 0 Year
  Sex: Female
  Weight: 3.42 kg

DRUGS (1)
  1. SOFOSBUVIR W/VELPATASVIR [Suspect]
     Active Substance: SOFOSBUVIR\VELPATASVIR
     Indication: HEPATITIS C
     Dosage: 1 DOSAGE FORM
     Route: 064
     Dates: start: 20200220

REACTIONS (3)
  - Small fontanelle [Unknown]
  - Foetal exposure during pregnancy [Recovered/Resolved]
  - Syndactyly [Unknown]

NARRATIVE: CASE EVENT DATE: 20200220
